FAERS Safety Report 4778382-0 (Version None)
Quarter: 2005Q3

REPORT INFORMATION
  Report Type: 
  Country: None (occurrence: None)
  Receive Date: 20050922
  Receipt Date: 20050906
  Transmission Date: 20060218
  Serious: Yes (Hospitalization)
  Sender: FDA-Public Use
  Company Number: 8011706

PATIENT
  Age: 60 Year
  Sex: Male
  Weight: 93.9 kg

DRUGS (11)
  1. ZAROXOLYN [Suspect]
     Indication: CARDIOVASCULAR DISORDER
     Dosage: 2.5 MG PRN PO
     Route: 048
  2. NESIRITIDE BLINDED INJECTION [Suspect]
     Indication: CARDIAC FAILURE
     Dosage: NI ONCE IV
     Route: 042
     Dates: start: 20050315, end: 20050315
  3. NESIRITIDE BLINDED INJECTION [Suspect]
     Indication: CARDIAC FAILURE
     Dosage: NI 2/W IV
     Route: 042
     Dates: start: 20050315, end: 20050628
  4. NESIRITIDE BLINDED INJECTION [Suspect]
     Indication: CARDIAC FAILURE
     Dosage: NI ONCE IV
     Route: 042
     Dates: start: 20050628, end: 20050628
  5. NESIRITIDE BLINDED INJECTION [Suspect]
     Indication: CARDIAC FAILURE
     Dosage: NI ONCE IV
     Route: 042
     Dates: start: 20050628, end: 20050628
  6. LISINOPRIL [Suspect]
     Indication: CARDIOVASCULAR DISORDER
     Dosage: 2.5 MG 1/D PO
     Route: 048
  7. DEMADEX [Suspect]
     Indication: CARDIOVASCULAR DISORDER
     Dosage: 50 MG 1/D PO
     Route: 048
  8. BETAPACE [Suspect]
     Indication: CARDIOVASCULAR DISORDER
     Dosage: 40 MG 2/D PO
     Route: 048
  9. K-DUR 10 [Concomitant]
  10. PRAVACHOL [Concomitant]
  11. ALLOPURINOL [Concomitant]

REACTIONS (12)
  - ASPARTATE AMINOTRANSFERASE INCREASED [None]
  - BLOOD ALKALINE PHOSPHATASE INCREASED [None]
  - BLOOD BICARBONATE INCREASED [None]
  - BLOOD CREATININE INCREASED [None]
  - BLOOD GLUCOSE INCREASED [None]
  - BLOOD SODIUM DECREASED [None]
  - BLOOD UREA INCREASED [None]
  - CARDIAC FAILURE CONGESTIVE [None]
  - CONDITION AGGRAVATED [None]
  - DRUG INTERACTION [None]
  - HYPOTENSION [None]
  - RESPIRATORY DISTRESS [None]
